FAERS Safety Report 11293441 (Version 1)
Quarter: 2015Q3

REPORT INFORMATION
  Report Type: Spontaneous
  Country: PH (occurrence: PH)
  Receive Date: 20150722
  Receipt Date: 20150722
  Transmission Date: 20151125
  Serious: Yes (Hospitalization, Other)
  Sender: FDA-Public Use
  Company Number: PHHY2015PH085812

PATIENT

DRUGS (2)
  1. GILENYA [Suspect]
     Active Substance: FINGOLIMOD HYDROCHLORIDE
     Indication: PRODUCT USED FOR UNKNOWN INDICATION
     Dosage: 1 DF, QD
     Route: 065
  2. GILENYA [Suspect]
     Active Substance: FINGOLIMOD HYDROCHLORIDE
     Dosage: 1 DF, QOD
     Route: 065

REACTIONS (7)
  - Pyrexia [Unknown]
  - Muscular weakness [Unknown]
  - Prescribed underdose [Unknown]
  - Off label use [Unknown]
  - Hepatic enzyme increased [Recovering/Resolving]
  - Central nervous system lesion [Unknown]
  - Viral infection [Unknown]
